FAERS Safety Report 7231726-2 (Version None)
Quarter: 2011Q1

REPORT INFORMATION
  Report Type: 
  Country: None (occurrence: None)
  Receive Date: 20110118
  Receipt Date: 20110112
  Transmission Date: 20110831
  Serious: Yes (Death)
  Sender: FDA-Public Use
  Company Number: JP-PFIZER INC-2011007296

PATIENT
  Age: 55 Year
  Sex: Male
  Weight: 81 kg

DRUGS (3)
  1. CYCLOSPORINE [Suspect]
     Indication: HENOCH-SCHONLEIN PURPURA NEPHRITIS
     Dosage: 150 MG, 1X/DAY
     Dates: start: 20060601
  2. PREDNISOLONE [Suspect]
     Indication: HENOCH-SCHONLEIN PURPURA NEPHRITIS
     Dosage: 60 MG, 1X/DAY
     Dates: start: 20060501
  3. METHYLPREDNISOLONE SODIUM SUCCINATE [Suspect]
     Indication: HENOCH-SCHONLEIN PURPURA NEPHRITIS
     Dosage: 500 MG, 1X/DAY
     Dates: start: 20060501

REACTIONS (3)
  - GASTROINTESTINAL HAEMORRHAGE [None]
  - SHOCK HAEMORRHAGIC [None]
  - CYTOMEGALOVIRUS ENTEROCOLITIS [None]
